FAERS Safety Report 6174210-X (Version None)
Quarter: 2009Q2

REPORT INFORMATION
  Report Type: 
  Country: None (occurrence: None)
  Receive Date: 20090430
  Receipt Date: 20080326
  Transmission Date: 20091009
  Serious: No
  Sender: FDA-Public Use
  Company Number: US-ASTRAZENECA-2008UW06111

PATIENT
  Age: 56 Year
  Sex: Female
  Weight: 86.2 kg

DRUGS (2)
  1. NEXIUM [Suspect]
     Route: 048
     Dates: start: 20080324
  2. ALTACE [Concomitant]
     Indication: BLOOD PRESSURE

REACTIONS (2)
  - BLOOD PRESSURE DECREASED [None]
  - HEADACHE [None]
